FAERS Safety Report 8971658 (Version 1)
Quarter: 2012Q4

REPORT INFORMATION
  Report Type: 
  Country: GB (occurrence: GB)
  Receive Date: 20121217
  Receipt Date: 20121217
  Transmission Date: 20130627
  Serious: Yes (Hospitalization)
  Sender: FDA-Public Use
  Company Number: GB-PFIZER INC-2004025812

PATIENT
  Age: 79 Year
  Sex: Male

DRUGS (12)
  1. IBUPROFEN [Suspect]
     Dosage: 400 mg, 3x/day
     Route: 048
     Dates: start: 2001, end: 20040311
  2. ATORVASTATIN [Suspect]
     Dosage: 40 mg, 1x/day
     Route: 048
     Dates: start: 200311, end: 20040311
  3. AVANDIA [Suspect]
     Indication: NON-INSULIN-DEPENDENT DIABETES MELLITUS
     Dosage: 8 mg, 1x/day
     Route: 048
     Dates: start: 200210, end: 20040316
  4. METFORMIN HCL [Concomitant]
     Dosage: UNK
     Route: 065
  5. GLICLAZIDE [Concomitant]
     Dosage: UNK
     Route: 065
  6. LEVOTHYROXINE SODIUM [Concomitant]
     Dosage: UNK
     Route: 065
  7. RAMIPRIL [Concomitant]
     Dosage: 2.5 mg, 1x/day
     Route: 065
  8. OXYBUTYNIN [Concomitant]
     Dosage: 10 mg, 1x/day
     Route: 065
     Dates: start: 200311
  9. CO-CODAMOL [Concomitant]
     Dosage: UNK
     Route: 065
  10. SILDENAFIL CITRATE [Concomitant]
     Dosage: UNK
     Route: 065
  11. AMOXICILLIN [Concomitant]
     Dosage: 250 mg, 3x/day
     Route: 065
     Dates: start: 20031120, end: 20031125
  12. DOXYCYCLINE HYCLATE [Concomitant]
     Dosage: 100 mg, 1x/day
     Route: 065
     Dates: start: 20031128, end: 20031205

REACTIONS (3)
  - Jaundice [Recovered/Resolved]
  - Liver function test abnormal [Recovering/Resolving]
  - Cholelithiasis [Unknown]
